FAERS Safety Report 8161336-4 (Version None)
Quarter: 2012Q1

REPORT INFORMATION
  Report Type: 
  Country: None (occurrence: None)
  Receive Date: 20120224
  Receipt Date: 20120213
  Transmission Date: 20120608
  Serious: Yes (Hospitalization)
  Sender: FDA-Public Use
  Company Number: US-SANOFI-AVENTIS-2012SA009310

PATIENT
  Age: 74 Year
  Sex: Female

DRUGS (2)
  1. SOLOSTAR [Suspect]
     Dates: start: 20100101
  2. LANTUS [Suspect]
     Dosage: DOSE:36 UNIT(S)
     Route: 058
     Dates: start: 20100101

REACTIONS (3)
  - NEUROPATHY PERIPHERAL [None]
  - MEDICATION ERROR [None]
  - NIGHT SWEATS [None]
